FAERS Safety Report 21671590 (Version 1)
Quarter: 2022Q4

REPORT INFORMATION
  Report Type: Spontaneous
  Country: RU (occurrence: RU)
  Receive Date: 20221202
  Receipt Date: 20221202
  Transmission Date: 20230112
  Serious: Yes (Death)
  Sender: FDA-Public Use
  Company Number: RU-JNJFOC-20221167224

PATIENT
  Age: 60 Year
  Sex: Male

DRUGS (7)
  1. SIRTURO [Suspect]
     Active Substance: BEDAQUILINE FUMARATE
     Indication: Tuberculosis
     Dosage: 7/7
     Route: 048
     Dates: start: 20211004, end: 20211217
  2. SIRTURO [Suspect]
     Active Substance: BEDAQUILINE FUMARATE
     Dosage: 7/7
     Route: 048
     Dates: start: 20211018, end: 20221116
  3. MOXIFLOXACIN [Suspect]
     Active Substance: MOXIFLOXACIN
     Indication: Tuberculosis
     Dosage: 7/7
     Route: 048
     Dates: start: 20211004, end: 20211230
  4. LINEZOLID [Suspect]
     Active Substance: LINEZOLID
     Indication: Tuberculosis
     Dosage: 7/7
     Route: 048
     Dates: start: 20211004, end: 20221116
  5. CLOFAZIMINE [Suspect]
     Active Substance: CLOFAZIMINE
     Indication: Tuberculosis
     Dosage: 7/7
     Route: 048
     Dates: start: 20211004, end: 20221116
  6. CYCLOSERINE [Suspect]
     Active Substance: CYCLOSERINE
     Indication: Tuberculosis
     Dosage: 7/7
     Route: 048
     Dates: start: 20211230, end: 20221116
  7. DELAMANID [Suspect]
     Active Substance: DELAMANID
     Indication: Tuberculosis
     Dosage: 7/7
     Route: 048
     Dates: start: 20211230, end: 20221116

REACTIONS (1)
  - Pulmonary embolism [Fatal]
